FAERS Safety Report 6753568-4 (Version None)
Quarter: 2010Q2

REPORT INFORMATION
  Report Type: 
  Country: None (occurrence: None)
  Receive Date: 20100528
  Receipt Date: 20100521
  Transmission Date: 20101027
  Serious: Yes (Death, Other)
  Sender: FDA-Public Use
  Company Number: 2010JP003028

PATIENT
  Age: 59 Year
  Sex: Male

DRUGS (3)
  1. TACROLIMUS [Suspect]
     Indication: HEART TRANSPLANT
  2. CELLCEPT [Suspect]
     Indication: HEART TRANSPLANT
  3. PREDNISOLONE [Suspect]
     Indication: HEART TRANSPLANT

REACTIONS (3)
  - CRYPTOCOCCOSIS [None]
  - FUNGAL SEPSIS [None]
  - MENINGITIS CRYPTOCOCCAL [None]
